FAERS Safety Report 7934620-4 (Version None)
Quarter: 2011Q4

REPORT INFORMATION
  Report Type: 
  Country: None (occurrence: None)
  Receive Date: 20111122
  Receipt Date: 20111111
  Transmission Date: 20120403
  Serious: Yes (Hospitalization)
  Sender: FDA-Public Use
  Company Number: US-BAXTER-2011BH033032

PATIENT
  Age: 55 Year
  Sex: Female

DRUGS (1)
  1. DIANEAL [Suspect]
     Indication: PERITONEAL DIALYSIS
     Route: 033

REACTIONS (5)
  - DYSPNOEA [None]
  - MYOCARDIAL INFARCTION [None]
  - CHEST PAIN [None]
  - MENTAL STATUS CHANGES [None]
  - DEPRESSION [None]
